FAERS Safety Report 23264305 (Version 2)
Quarter: 2024Q1

REPORT INFORMATION
  Report Type: Spontaneous
  Country: US (occurrence: US)
  Receive Date: 20231205
  Receipt Date: 20240105
  Transmission Date: 20240409
  Serious: Yes (Other)
  Sender: FDA-Public Use
  Company Number: US-FreseniusKabi-FK202319416

PATIENT
  Age: 54 Year
  Sex: Female
  Weight: 53.52 kg

DRUGS (1)
  1. XYLOCAINE WITH EPINEPHRINE [Suspect]
     Active Substance: EPINEPHRINE BITARTRATE\LIDOCAINE HYDROCHLORIDE
     Indication: Product used for unknown indication
     Dosage: USED 1.5 OF SQ (B) ON 16/NOV/2023. BLEEDING OUT OF THE ORDINARY DURING AND POST OP.?NO FURTHER USE A
     Dates: start: 20231116

REACTIONS (2)
  - Haemorrhage [Unknown]
  - Therapeutic product effect decreased [Unknown]

NARRATIVE: CASE EVENT DATE: 20231116
